FAERS Safety Report 8781616 (Version 1)
Quarter: 2012Q4

REPORT INFORMATION
  Report Type: Report from Study
  Country: US (occurrence: US)
  Receive Date: 20120913
  Receipt Date: 20120913
  Transmission Date: 20130627
  Serious: No
  Sender: FDA-Public Use
  Company Number: US-VERTEX PHARMACEUTICAL INC.-AE-2012-007080

PATIENT
  Age: 53 Year
  Sex: Female
  Weight: 337 kg

DRUGS (7)
  1. INCIVEK [Suspect]
     Indication: HEPATITIS C
     Route: 048
     Dates: start: 20120409
  2. PEGASYS [Concomitant]
     Indication: HEPATITIS C
     Route: 058
     Dates: start: 20120409
  3. RIBAPAK [Concomitant]
     Indication: HEPATITIS C
     Route: 048
     Dates: start: 20120409
  4. CLONIDINE [Concomitant]
  5. LISINOPRIL [Concomitant]
  6. CENTRUM SILVER [Concomitant]
  7. TRAMADOL [Concomitant]

REACTIONS (5)
  - Rectal haemorrhage [Recovered/Resolved]
  - Painful defaecation [Unknown]
  - Proctalgia [Unknown]
  - Anal pruritus [Unknown]
  - Pruritus [Unknown]
